FAERS Safety Report 8052354-5 (Version None)
Quarter: 2012Q1

REPORT INFORMATION
  Report Type: 
  Country: None (occurrence: None)
  Receive Date: 20120118
  Receipt Date: 20120109
  Transmission Date: 20120608
  Serious: Yes (Hospitalization)
  Sender: FDA-Public Use
  Company Number: US-BAYER-2011-048020

PATIENT
  Age: 15 Year
  Sex: Female
  Weight: 113 kg

DRUGS (3)
  1. RANITIDINE [Concomitant]
  2. YAZ [Suspect]
     Dosage: UNK
     Route: 048
     Dates: start: 20090209, end: 20090517
  3. WELLBUTRIN [Concomitant]

REACTIONS (5)
  - INJURY [None]
  - ANXIETY [None]
  - ANHEDONIA [None]
  - PAIN [None]
  - PULMONARY EMBOLISM [None]
